FAERS Safety Report 5441719-3 (Version None)
Quarter: 2007Q3

REPORT INFORMATION
  Report Type: 
  Country: None (occurrence: None)
  Receive Date: 20070829
  Receipt Date: 20070808
  Transmission Date: 20080115
  Serious: Yes (Other)
  Sender: FDA-Public Use
  Company Number: ENT 2007-0129

PATIENT
  Age: 69 Year
  Sex: Male

DRUGS (7)
  1. ENTACAPONE [Suspect]
     Indication: PARKINSON'S DISEASE
     Dosage: 800 MG
     Dates: start: 20040101
  2. LAMISIL [Suspect]
     Indication: NAIL TINEA
     Dosage: 205 MG ORAL
     Dates: start: 20070629
  3. SINEMET [Suspect]
     Indication: PARKINSON'S DISEASE
     Dosage: 400 MG
     Dates: start: 20040101
  4. REQUIP [Suspect]
     Indication: PARKINSON'S DISEASE
     Dosage: 21 MG
     Dates: start: 20040101
  5. MAREVAN [Concomitant]
  6. NITROGLYCERIN [Concomitant]
  7. VERRUXIN [Concomitant]

REACTIONS (2)
  - DRUG INTERACTION [None]
  - HALLUCINATION, VISUAL [None]
